FAERS Safety Report 16545249 (Version 1)
Quarter: 2019Q3

REPORT INFORMATION
  Report Type: Report from Study
  Country: DE (occurrence: DE)
  Receive Date: 20190709
  Receipt Date: 20190709
  Transmission Date: 20191004
  Serious: Yes (Death)
  Sender: FDA-Public Use
  Company Number: DE-PFIZER INC-2019294064

PATIENT

DRUGS (4)
  1. CISPLATIN. [Suspect]
     Active Substance: CISPLATIN
     Indication: NON-SMALL CELL LUNG CANCER STAGE III
     Dosage: 55 MG/M2, CYCLIC (THREE CYCLES ON DAYS 1+4, 22+25, 43+46)
  2. VINDESINE SULFATE [Suspect]
     Active Substance: VINDESINE SULFATE
     Indication: NON-SMALL CELL LUNG CANCER STAGE III
     Dosage: 3 MG, CYCLIC (ABSOLUTE, ONCE WEEKLY ON DAYS 1, 8, 15)
  3. CARBOPLATIN. [Suspect]
     Active Substance: CARBOPLATIN
     Indication: NON-SMALL CELL LUNG CANCER STAGE III
     Dosage: 100 MG/M2, CYCLIC (ONCE WEEKLY ON DAYS 1, 8, 15)
  4. ETOPOSIDE. [Suspect]
     Active Substance: ETOPOSIDE
     Indication: NON-SMALL CELL LUNG CANCER STAGE III
     Dosage: 100 MG/M2, CYCLIC (THREE CYCLES ON DAYS 1-4, 22-25, 43-46)

REACTIONS (2)
  - Neutropenia [Fatal]
  - Sepsis [Fatal]
